FAERS Safety Report 9584118 (Version 1)
Quarter: 2013Q4

REPORT INFORMATION
  Report Type: Spontaneous
  Country: US (occurrence: US)
  Receive Date: 20131002
  Receipt Date: 20131002
  Transmission Date: 20140711
  Serious: No
  Sender: FDA-Public Use
  Company Number: US-AMGEN-USASP2013052075

PATIENT
  Age: 55 Year
  Sex: Female
  Weight: 81.18 kg

DRUGS (6)
  1. ENBREL [Suspect]
     Indication: PRODUCT USED FOR UNKNOWN INDICATION
     Dosage: 50 MG, QWK
     Route: 058
  2. PLAQUENIL                          /00072602/ [Concomitant]
     Dosage: 200 MG, UNK
  3. FOLIC ACID [Concomitant]
     Dosage: UNK
  4. METFORMIN [Concomitant]
     Dosage: 850 MG, UNK
  5. LISINOPRIL [Concomitant]
     Dosage: 10 MG, UNK
  6. MELOXICAM [Concomitant]
     Dosage: 7.5 MG, UNK

REACTIONS (3)
  - Injection site pruritus [Recovered/Resolved]
  - Injection site erythema [Recovered/Resolved]
  - Injection site pain [Recovered/Resolved]
